FAERS Safety Report 5046701-6 (Version None)
Quarter: 2006Q3

REPORT INFORMATION
  Report Type: 
  Country: None (occurrence: None)
  Receive Date: 20060705
  Receipt Date: 20060705
  Transmission Date: 20061208
  Serious: Yes (Life-Threatening, Hospitalization, Disabling)
  Sender: FDA-Public Use
  Company Number: None

PATIENT
  Age: 69 Year
  Sex: Female
  Weight: 120.2032 kg

DRUGS (2)
  1. TRASYLOL [Suspect]
     Indication: CORONARY ARTERY BYPASS
     Dosage: 1ML TEST DOSE, THEN 200ML BOLUS, THEN 50ML/HR X 200 ML
     Route: 040
     Dates: start: 20060510
  2. SEE ATTACHED LIST [Concomitant]

REACTIONS (8)
  - ACTIVITIES OF DAILY LIVING IMPAIRED [None]
  - CEREBROVASCULAR ACCIDENT [None]
  - DELAYED RECOVERY FROM ANAESTHESIA [None]
  - HEMIPARESIS [None]
  - ISCHAEMIC CEREBRAL INFARCTION [None]
  - MOBILITY DECREASED [None]
  - POST PROCEDURAL COMPLICATION [None]
  - RENAL FAILURE ACUTE [None]
